FAERS Safety Report 8518505-0 (Version None)
Quarter: 2012Q3

REPORT INFORMATION
  Report Type: 
  Country: None (occurrence: None)
  Receive Date: 20120718
  Receipt Date: 20120509
  Transmission Date: 20120928
  Serious: No
  Sender: FDA-Public Use
  Company Number: US-BRISTOL-MYERS SQUIBB COMPANY-16547754

PATIENT
  Sex: Female

DRUGS (3)
  1. COMBIGAN [Suspect]
  2. CASCARA TAB [Suspect]
  3. COUMADIN [Suspect]
     Dosage: BLUE TAB

REACTIONS (1)
  - ECCHYMOSIS [None]
